FAERS Safety Report 9889793 (Version 3)
Quarter: 2015Q4

REPORT INFORMATION
  Report Type: Report from Study
  Country: US (occurrence: US)
  Receive Date: 20140212
  Receipt Date: 20151110
  Transmission Date: 20160305
  Serious: Yes (Hospitalization)
  Sender: FDA-Public Use
  Company Number: US-ROCHE-1302811

PATIENT
  Age: 95 Year
  Sex: Female

DRUGS (1)
  1. LUCENTIS [Suspect]
     Active Substance: RANIBIZUMAB
     Indication: RETINAL OEDEMA
     Dosage: INJECTIONS BOTH EYES
     Route: 050

REACTIONS (3)
  - Injection site pain [Unknown]
  - Cardiac failure congestive [Unknown]
  - Visual impairment [Unknown]

NARRATIVE: CASE EVENT DATE: 20131107
